FAERS Safety Report 9971878 (Version 1)
Quarter: 2014Q1

REPORT INFORMATION
  Report Type: Report from Study
  Country: US (occurrence: US)
  Receive Date: 20140306
  Receipt Date: 20140306
  Transmission Date: 20141002
  Serious: No
  Sender: FDA-Public Use
  Company Number: US-ABBVIE-13P-163-1152914-00

PATIENT
  Age: 64 Year
  Sex: Female
  Weight: 43.13 kg

DRUGS (9)
  1. HUMIRA [Suspect]
     Indication: PSORIASIS
     Dates: start: 20130902, end: 20130902
  2. HUMIRA [Suspect]
     Dates: start: 20130909
  3. ALEVE [Concomitant]
     Indication: PRODUCT USED FOR UNKNOWN INDICATION
  4. ZANTAC [Concomitant]
     Indication: DYSPEPSIA
  5. TRIAMTERENE HCTZ [Concomitant]
     Indication: SWELLING
  6. FOLIC ACID [Concomitant]
     Indication: VITAMIN SUPPLEMENTATION
  7. POTASSIUM [Concomitant]
     Indication: MINERAL SUPPLEMENTATION
  8. CLARITIN [Concomitant]
     Indication: HYPERSENSITIVITY
  9. ONE A DAY WITHOUT IRON [Concomitant]
     Indication: VITAMIN SUPPLEMENTATION

REACTIONS (4)
  - Fall [Recovered/Resolved]
  - Staphylococcal infection [Recovering/Resolving]
  - Limb injury [Recovered/Resolved]
  - Excoriation [Recovering/Resolving]
